FAERS Safety Report 24210310 (Version 1)
Quarter: 2024Q3

REPORT INFORMATION
  Report Type: Spontaneous
  Country: JP (occurrence: JP)
  Receive Date: 20240814
  Receipt Date: 20240814
  Transmission Date: 20241017
  Serious: Yes (Other)
  Sender: AMGEN
  Company Number: JP-AMGEN-JPNSP2024157040

PATIENT
  Age: 85 Year
  Sex: Female

DRUGS (5)
  1. EVENITY [Suspect]
     Active Substance: ROMOSOZUMAB-AQQG
     Indication: Osteoporosis
     Dosage: 210 MILLIGRAM
     Route: 058
     Dates: start: 20240729
  2. PREDNISOLONE [Concomitant]
     Active Substance: PREDNISOLONE
     Indication: Behcet^s syndrome
     Dosage: UNK
  3. PREDNISOLONE [Concomitant]
     Active Substance: PREDNISOLONE
     Indication: Polymyalgia rheumatica
  4. CLOTIAZEPAM [Concomitant]
     Active Substance: CLOTIAZEPAM
     Indication: Stress
     Dosage: UNK
  5. LOXOPROFEN SODIUM [Concomitant]
     Active Substance: LOXOPROFEN SODIUM

REACTIONS (30)
  - Depressed level of consciousness [Unknown]
  - Hypoaesthesia oral [Unknown]
  - Back pain [Unknown]
  - Stress [Unknown]
  - Bruxism [Unknown]
  - Tooth disorder [Unknown]
  - Paraesthesia oral [Unknown]
  - Heart rate increased [Unknown]
  - Restlessness [Unknown]
  - Pain in extremity [Unknown]
  - Chapped lips [Unknown]
  - Temporomandibular pain and dysfunction syndrome [Unknown]
  - Limb discomfort [Unknown]
  - Tooth fracture [Unknown]
  - Confusional state [Unknown]
  - Speech disorder [Unknown]
  - Fracture pain [Not Recovered/Not Resolved]
  - Oropharyngeal pain [Unknown]
  - Oral disorder [Unknown]
  - Limb discomfort [Unknown]
  - Muscular weakness [Unknown]
  - Hypoaesthesia [Not Recovered/Not Resolved]
  - Dyspnoea [Unknown]
  - Asthenia [Unknown]
  - Chest pain [Unknown]
  - Arthralgia [Unknown]
  - Muscle spasms [Unknown]
  - Injection site pain [Unknown]
  - Headache [Unknown]
  - Dizziness [Unknown]

NARRATIVE: CASE EVENT DATE: 20240101
